FAERS Safety Report 8960557 (Version 1)
Quarter: 2012Q4

REPORT INFORMATION
  Report Type: Spontaneous
  Country: US (occurrence: None)
  Receive Date: 20121207
  Receipt Date: 20121207
  Transmission Date: 20130627
  Serious: Yes (Other)
  Sender: FDA-Public Use
  Company Number: None

PATIENT
  Age: 13 Year
  Sex: Male
  Weight: 50.8 kg

DRUGS (1)
  1. TAMIFLU [Suspect]
     Indication: INFLUENZA A VIRUS INFECTION
     Dosage: 1  2x day po
     Route: 048
     Dates: start: 20121204, end: 20121204

REACTIONS (2)
  - Incoherent [None]
  - Depression [None]
